FAERS Safety Report 13760980 (Version 2)
Quarter: 2017Q4

REPORT INFORMATION
  Report Type: Spontaneous
  Country: US (occurrence: US)
  Receive Date: 20170717
  Receipt Date: 20171006
  Transmission Date: 20180320
  Serious: No
  Sender: FDA-Public Use
  Company Number: US-BRISTOL-MYERS SQUIBB COMPANY-BMS-2017-062119

PATIENT
  Sex: Male

DRUGS (1)
  1. ABILIFY [Suspect]
     Active Substance: ARIPIPRAZOLE
     Indication: MAJOR DEPRESSION
     Dosage: 1 DF, UNK
     Route: 065
     Dates: start: 20090201, end: 20160204

REACTIONS (6)
  - Impulsive behaviour [Recovered/Resolved]
  - Eating disorder [Recovered/Resolved]
  - Obsessive-compulsive disorder [Recovered/Resolved]
  - Underdose [Unknown]
  - Economic problem [Unknown]
  - Gambling [Recovered/Resolved]
